FAERS Safety Report 6034747-0 (Version None)
Quarter: 2009Q1

REPORT INFORMATION
  Report Type: 
  Country: None (occurrence: None)
  Receive Date: 20090112
  Receipt Date: 20090107
  Transmission Date: 20090719
  Serious: Yes (Death)
  Sender: FDA-Public Use
  Company Number: JP-SANOFI-SYNTHELABO-F01200900012

PATIENT
  Sex: Male
  Weight: 66.1 kg

DRUGS (7)
  1. GASTER [Concomitant]
     Indication: PROPHYLAXIS AGAINST GASTROINTESTINAL ULCER
     Dosage: 20 MG
     Route: 048
     Dates: start: 20080920
  2. NORVASC [Concomitant]
     Dosage: 5 MG
     Route: 048
     Dates: start: 20080920
  3. HEPARIN [Concomitant]
     Indication: ANGINA UNSTABLE
     Dosage: 10000 UNIT
     Route: 042
     Dates: start: 20080919, end: 20080920
  4. ASPIRIN [Concomitant]
     Indication: ANGINA UNSTABLE
     Dosage: 200 MG
     Route: 048
     Dates: start: 20080919, end: 20080919
  5. ASPIRIN [Concomitant]
     Dosage: 100 MG
     Route: 048
     Dates: start: 20080920
  6. CLOPIDOGREL [Suspect]
     Indication: ANGINA UNSTABLE
     Dosage: STARTING DOSE 300 MG
     Route: 048
     Dates: start: 20080919, end: 20080919
  7. CLOPIDOGREL [Suspect]
     Dosage: MAINTENANCE DOSE
     Route: 048
     Dates: start: 20080920, end: 20080924

REACTIONS (3)
  - CARDIAC ARREST [None]
  - MYDRIASIS [None]
  - SUDDEN DEATH [None]
